FAERS Safety Report 4588305-5 (Version None)
Quarter: 2005Q1

REPORT INFORMATION
  Report Type: 
  Country: None (occurrence: None)
  Receive Date: 20050216
  Receipt Date: 20050201
  Transmission Date: 20050727
  Serious: Yes (Hospitalization)
  Sender: FDA-Public Use
  Company Number: RENA-11224

PATIENT
  Age: 56 Year
  Sex: Female
  Weight: 55.5 kg

DRUGS (15)
  1. RENAGEL [Suspect]
     Indication: HYPERPHOSPHATAEMIA
     Dosage: 0.5 G TID PO
     Route: 048
     Dates: start: 20040622, end: 20041114
  2. RENAGEL [Suspect]
     Indication: HYPERPHOSPHATAEMIA
     Dosage: 0.5 G TID PO
     Route: 048
     Dates: start: 20041203
  3. LASIX [Concomitant]
  4. ASPIRIN [Concomitant]
  5. RISUMIC (AMEZINIUM METILSULFATE) [Concomitant]
  6. MERISLON (BETAHISTINE HYDROCHLORIDE) [Concomitant]
  7. LENDORM [Concomitant]
  8. PURSENNID [Concomitant]
  9. EBASTEL [Concomitant]
  10. KETAS [Concomitant]
  11. OMEPRAL [Concomitant]
  12. GASTROM [Concomitant]
  13. MUCOSTA [Concomitant]
  14. OXAROL (MAXACALCITOL) [Concomitant]
  15. ALOSENN [Concomitant]

REACTIONS (8)
  - BLOOD PRESSURE DIASTOLIC INCREASED [None]
  - GASTROINTESTINAL PERFORATION [None]
  - HEART RATE INCREASED [None]
  - LIVER ABSCESS [None]
  - OXYGEN SATURATION DECREASED [None]
  - PROCEDURAL COMPLICATION [None]
  - RECTAL PERFORATION [None]
  - SPLENIC ABSCESS [None]
